FAERS Safety Report 5551069-2 (Version None)
Quarter: 2007Q4

REPORT INFORMATION
  Report Type: 
  Country: None (occurrence: None)
  Receive Date: 20071128
  Receipt Date: 20070201
  Transmission Date: 20080405
  Serious: Yes (Other)
  Sender: FDA-Public Use
  Company Number: 2007016175

PATIENT
  Age: 63 Year
  Sex: Female
  Weight: 68.5 kg

DRUGS (4)
  1. LIPITOR [Suspect]
     Indication: HYPERCHOLESTEROLAEMIA
     Dosage: 10 MG (10 MG, 1 IN 1 D), ORAL
     Route: 048
     Dates: start: 20051101, end: 20070116
  2. SALEX (SODIUM CHLORIDE) [Suspect]
     Indication: DRY SKIN
     Dosage: 6% (DAILY), TOPICAL
     Route: 061
     Dates: start: 20050101
  3. NEURONTIN [Concomitant]
  4. ALL OTHER THERAPEUTIC PRODUCTS (ALL OTHER THERAPEUTIC PRODUCTS) [Concomitant]

REACTIONS (2)
  - DRY SKIN [None]
  - HEPATIC ENZYME INCREASED [None]
